FAERS Safety Report 7724963-1 (Version None)
Quarter: 2011Q3

REPORT INFORMATION
  Report Type: 
  Country: None (occurrence: None)
  Receive Date: 20110901
  Receipt Date: 20110831
  Transmission Date: 20111222
  Serious: Yes (Life-Threatening, Hospitalization)
  Sender: FDA-Public Use
  Company Number: DE-BAYER-2011-079708

PATIENT
  Age: 58 Year
  Sex: Female

DRUGS (1)
  1. ULTRAVIST 150 [Suspect]
     Indication: COMPUTERISED TOMOGRAM
     Dosage: 100 ML, ONCE
     Route: 042
     Dates: start: 20110826, end: 20110826

REACTIONS (3)
  - PLATELET COUNT DECREASED [None]
  - PULMONARY OEDEMA [None]
  - CIRCULATORY COLLAPSE [None]
